FAERS Safety Report 8907889 (Version 1)
Quarter: 2012Q4

REPORT INFORMATION
  Report Type: 
  Country: US (occurrence: US)
  Receive Date: 20121113
  Receipt Date: 20121113
  Transmission Date: 20130627
  Serious: No
  Sender: FDA-Public Use
  Company Number: US-AMGEN-USASP2012039477

PATIENT
  Sex: Male

DRUGS (4)
  1. ENBREL [Suspect]
     Indication: PRODUCT USED FOR UNKNOWN INDICATION
     Dosage: 50 mg/ml, qwk
     Route: 058
  2. LIBRAX /00033301/ [Concomitant]
     Dosage: 2.5 mg, UNK
  3. CELEX                              /00145501/ [Concomitant]
     Dosage: 20 mg, UNK
  4. OMEPRAZOLE [Concomitant]
     Dosage: UNK mg, UNK

REACTIONS (1)
  - Influenza [Unknown]
